FAERS Safety Report 26166439 (Version 1)
Quarter: 2025Q4

REPORT INFORMATION
  Report Type: Spontaneous
  Country: US (occurrence: US)
  Receive Date: 20251217
  Receipt Date: 20251217
  Transmission Date: 20260119
  Serious: No
  Sender: CELLTRION
  Company Number: US-CELLTRION INC.-2025US012355

PATIENT

DRUGS (4)
  1. RITUXIMAB [Suspect]
     Active Substance: RITUXIMAB
     Indication: Antineutrophil cytoplasmic antibody
     Dosage: 1500 MG EVERY 15 DAYS
     Route: 042
  2. RITUXIMAB [Suspect]
     Active Substance: RITUXIMAB
     Indication: Glomerulonephritis
     Dosage: 1500 MG EVERY 15 DAYS (HE RECEIVED HIS SECOND DOSE OF RITUXIMAB OUTPATIENT)
     Route: 042
  3. CYCLOPHOSPHAMIDE [Concomitant]
     Active Substance: CYCLOPHOSPHAMIDE
  4. MYCOPHENOLATE MOFETIL [Concomitant]
     Active Substance: MYCOPHENOLATE MOFETIL

REACTIONS (1)
  - Drug ineffective for unapproved indication [Unknown]
